FAERS Safety Report 4875365-7 (Version None)
Quarter: 2006Q1

REPORT INFORMATION
  Report Type: 
  Country: None (occurrence: None)
  Receive Date: 20060109
  Receipt Date: 20051005
  Transmission Date: 20060701
  Serious: Yes (Death, Hospitalization, Other)
  Sender: FDA-Public Use
  Company Number: US-MERCK-0510USA04381

PATIENT
  Age: 75 Year
  Sex: Male
  Weight: 91 kg

DRUGS (1)
  1. VIOXX [Suspect]
     Indication: MONARTHRITIS
     Route: 048

REACTIONS (12)
  - ADVERSE EVENT [None]
  - ATRIAL FIBRILLATION [None]
  - CARDIAC DISORDER [None]
  - CARDIOVASCULAR DISORDER [None]
  - CAROTID ARTERY DISEASE [None]
  - CEREBROVASCULAR ACCIDENT [None]
  - CONVULSION [None]
  - DEATH [None]
  - DEPRESSION [None]
  - GALLBLADDER DISORDER [None]
  - HERNIA [None]
  - HYPERTENSION [None]
